FAERS Safety Report 9980635 (Version 2)
Quarter: 2014Q1

REPORT INFORMATION
  Report Type: Spontaneous
  Country: JP (occurrence: JP)
  Receive Date: 20140307
  Receipt Date: 20140319
  Transmission Date: 20141002
  Serious: Yes (Other)
  Sender: FDA-Public Use
  Company Number: JP-BRISTOL-MYERS SQUIBB COMPANY-20387023

PATIENT
  Age: 50 Year
  Sex: Male

DRUGS (7)
  1. ABILIFY DISCMELT TABS [Suspect]
     Route: 048
  2. CYMBALTA [Concomitant]
     Dosage: CAPS
  3. EPERISONE HCL [Concomitant]
     Dosage: TAB
  4. DEPAS [Concomitant]
     Dosage: TAB
  5. TRIAZOLAM [Concomitant]
     Dosage: TAB
  6. MYSLEE [Concomitant]
     Dosage: TAB
  7. FAMOTIDINE [Concomitant]
     Dosage: ORODISPERSIBLE TABLET

REACTIONS (1)
  - Road traffic accident [Unknown]
